FAERS Safety Report 5166849-5 (Version None)
Quarter: 2006Q4

REPORT INFORMATION
  Report Type: 
  Country: None (occurrence: None)
  Receive Date: 20061204
  Receipt Date: 20061204
  Transmission Date: 20070319
  Serious: Yes (Other)
  Sender: FDA-Public Use
  Company Number: None

PATIENT
  Sex: Female
  Weight: 58.9676 kg

DRUGS (2)
  1. FOSAMAX [Suspect]
     Indication: OSTEOPOROSIS
     Dosage: 1 ONCE A WEEK PO
     Route: 048
     Dates: start: 20040401, end: 20040421
  2. FOSAMAX [Suspect]
     Dosage: 1 ONCE A WEEK PO
     Route: 048
     Dates: start: 20040801, end: 20060604

REACTIONS (21)
  - ARTHRALGIA [None]
  - ARTIFICIAL CROWN PROCEDURE [None]
  - BONE PAIN [None]
  - BURNING SENSATION [None]
  - CARDIAC VALVE DISEASE [None]
  - CHEST PAIN [None]
  - DRUG INTOLERANCE [None]
  - ENDODONTIC PROCEDURE [None]
  - EYE PAIN [None]
  - HEART RATE IRREGULAR [None]
  - HYPOAESTHESIA [None]
  - MIGRAINE WITH AURA [None]
  - MUSCULOSKELETAL PAIN [None]
  - NECK PAIN [None]
  - PAIN IN JAW [None]
  - PALPITATIONS [None]
  - PARAESTHESIA [None]
  - PRESYNCOPE [None]
  - PRURITUS [None]
  - SCLERAL DISCOLOURATION [None]
  - TINNITUS [None]
